FAERS Safety Report 9553565 (Version 1)
Quarter: 2013Q3

REPORT INFORMATION
  Report Type: Spontaneous
  Country: US (occurrence: None)
  Receive Date: 20130924
  Receipt Date: 20130924
  Transmission Date: 20140515
  Serious: No
  Sender: FDA-Public Use
  Company Number: None

PATIENT
  Age: 25 Year
  Sex: Female
  Weight: 72.58 kg

DRUGS (1)
  1. EPIDUO [Suspect]
     Indication: ACNE
     Dosage: 1 PEA SIZE ONCE DAILY ?APPLIED TO SURFACE, USUALLY THE SKIN
     Dates: start: 20130916, end: 20130930

REACTIONS (6)
  - Pain [None]
  - Burning sensation [None]
  - Pruritus [None]
  - Swelling [None]
  - Erythema of eyelid [None]
  - Eyelid skin dryness [None]
